FAERS Safety Report 8959558 (Version 1)
Quarter: 2013Q1

REPORT INFORMATION
  Report Type: Report from Study
  Country: JP (occurrence: JP)
  Receive Date: 20121212
  Receipt Date: 20130104
  Transmission Date: 20140127
  Serious: Yes (Hospitalization)
  Sender: FDA-Public Use
  Company Number: JP-ASTRAZENECA-2012SE92127

PATIENT
  Age: 26813 Day
  Sex: Female

DRUGS (9)
  1. AZD6140 [Suspect]
     Indication: CORONARY ARTERY DISEASE
     Route: 048
     Dates: start: 20120126, end: 20121202
  2. BAYASPIRIN [Suspect]
     Route: 048
     Dates: start: 20110115, end: 20121203
  3. BAYASPIRIN [Suspect]
     Route: 048
     Dates: start: 20121214
  4. RABEPRAZOLE NA [Concomitant]
     Indication: PROPHYLAXIS AGAINST GASTROINTESTINAL ULCER
     Route: 048
  5. OLMETEC [Concomitant]
     Indication: HYPERTENSION
     Route: 048
  6. KALLIKREIN [Concomitant]
     Indication: ARTERIOSCLEROSIS
     Route: 048
  7. FRANDOL TAPE [Concomitant]
     Indication: MYOCARDIAL INFARCTION
     Route: 062
  8. ARTIST [Concomitant]
     Indication: HYPERTENSION
     Route: 048
  9. CALBLOCK [Concomitant]
     Indication: HYPERTENSION
     Route: 048

REACTIONS (1)
  - Mallory-Weiss syndrome [Recovered/Resolved]
